FAERS Safety Report 4596065-7 (Version None)
Quarter: 2005Q1

REPORT INFORMATION
  Report Type: 
  Country: None (occurrence: None)
  Receive Date: 20050225
  Receipt Date: 20050218
  Transmission Date: 20050727
  Serious: Yes (Death, Life-Threatening)
  Sender: FDA-Public Use
  Company Number: 2005PK00278

PATIENT
  Age: 73 Year
  Sex: Female

DRUGS (12)
  1. SEROQUEL [Suspect]
     Dosage: 50 MG DAILY PO
     Route: 048
     Dates: start: 20031226, end: 20040103
  2. SEROQUEL [Suspect]
     Dosage: 100 MG DAILY PO
     Route: 048
     Dates: start: 20040104, end: 20040115
  3. SEROQUEL [Suspect]
     Dosage: 150 MG DAILY PO
     Route: 048
     Dates: start: 20040116, end: 20040120
  4. SEROQUEL [Suspect]
     Dosage: 200 MG DAILY PO
     Route: 048
     Dates: start: 20040121, end: 20040202
  5. SEROQUEL [Suspect]
     Dosage: 300 MG DAILY PO
     Route: 048
     Dates: start: 20040203
  6. FLUANXOL [Suspect]
     Dosage: 7 MG DAILY PO
     Route: 048
     Dates: start: 20020801
  7. FLUANXOL [Suspect]
     Dosage: 3 MG DAILY PO
     Route: 048
     Dates: start: 20031226, end: 20040120
  8. FLUANXOL [Suspect]
     Dosage: 3 MG DAILY PO
     Route: 048
     Dates: start: 20040121
  9. CARMEN [Suspect]
     Dosage: 10 MG DAILY
     Dates: start: 20020701
  10. EDRONAX [Concomitant]
  11. L-THYROXIN [Concomitant]
  12. OSSOFORTIN [Concomitant]

REACTIONS (8)
  - ARRHYTHMIA [None]
  - CARDIAC FAILURE [None]
  - CARDIOPULMONARY FAILURE [None]
  - CORONARY ARTERY DISEASE [None]
  - DRUG INTERACTION [None]
  - FALL [None]
  - HEPATIC CONGESTION [None]
  - SKIN LACERATION [None]
